FAERS Safety Report 17785992 (Version 1)
Quarter: 2020Q2

REPORT INFORMATION
  Report Type: Spontaneous
  Country: US (occurrence: US)
  Receive Date: 20200513
  Receipt Date: 20200513
  Transmission Date: 20200714
  Serious: No
  Sender: FDA-Public Use
  Company Number: US-BLUEPRINT MEDICINES CORPORATION-SP-US-2020-000559

PATIENT
  Age: 53 Year
  Sex: Female

DRUGS (3)
  1. AYVAKIT [Suspect]
     Active Substance: AVAPRITINIB
     Indication: SOFT TISSUE SARCOMA
  2. AYVAKIT [Suspect]
     Active Substance: AVAPRITINIB
     Indication: MALIGNANT CONNECTIVE TISSUE NEOPLASM
     Route: 048
     Dates: start: 20200331
  3. AYVAKIT [Suspect]
     Active Substance: AVAPRITINIB
     Indication: GASTROINTESTINAL STROMAL TUMOUR

REACTIONS (6)
  - Off label use [Unknown]
  - Somnolence [Unknown]
  - Fatigue [Unknown]
  - Product dose omission [Unknown]
  - Eyelid oedema [Unknown]
  - Nausea [Unknown]

NARRATIVE: CASE EVENT DATE: 20200331
